FAERS Safety Report 14319385 (Version 1)
Quarter: 2017Q4

REPORT INFORMATION
  Report Type: Spontaneous
  Country: US (occurrence: US)
  Receive Date: 20171222
  Receipt Date: 20171222
  Transmission Date: 20180321
  Serious: Yes (Death, Other)
  Sender: FDA-Public Use
  Company Number: US-PFIZER INC-2017541586

PATIENT
  Age: 64 Year
  Sex: Male

DRUGS (6)
  1. IBUPROFEN. [Suspect]
     Active Substance: IBUPROFEN
     Dosage: UNK
     Route: 048
  2. IBUPROFEN. [Suspect]
     Active Substance: IBUPROFEN
     Dosage: UNK
     Route: 055
  3. IBUPROFEN. [Suspect]
     Active Substance: IBUPROFEN
     Dosage: UNK
     Route: 061
  4. DROPERIDOL/FENTANYL [Suspect]
     Active Substance: DROPERIDOL\FENTANYL
     Dosage: UNK
     Route: 055
  5. DROPERIDOL/FENTANYL [Suspect]
     Active Substance: DROPERIDOL\FENTANYL
     Dosage: UNK
     Route: 048
  6. DROPERIDOL/FENTANYL [Suspect]
     Active Substance: DROPERIDOL\FENTANYL
     Dosage: UNK
     Route: 061

REACTIONS (1)
  - Completed suicide [Fatal]

NARRATIVE: CASE EVENT DATE: 2016
